FAERS Safety Report 7248762-2 (Version None)
Quarter: 2011Q1

REPORT INFORMATION
  Report Type: 
  Country: None (occurrence: None)
  Receive Date: 20110121
  Receipt Date: 20110121
  Transmission Date: 20110831
  Serious: Yes (Other)
  Sender: FDA-Public Use
  Company Number: None

PATIENT
  Sex: Male

DRUGS (2)
  1. LORAZEPAM [Suspect]
     Indication: ANXIETY
     Dosage: 0.4 MG QD PO
     Route: 048
     Dates: start: 20101201, end: 20101221
  2. LORAZEPAM [Suspect]
     Indication: SOMNOLENCE
     Dosage: 0.4 MG QD PO
     Route: 048
     Dates: start: 20101201, end: 20101221

REACTIONS (1)
  - DRUG INEFFECTIVE [None]
